FAERS Safety Report 7323032-2 (Version None)
Quarter: 2011Q1

REPORT INFORMATION
  Report Type: 
  Country: None (occurrence: None)
  Receive Date: 20110301
  Receipt Date: 20110223
  Transmission Date: 20110831
  Serious: Yes (Death, Other)
  Sender: FDA-Public Use
  Company Number: PHHY2011AU14705

PATIENT

DRUGS (4)
  1. HALOPERIDOL [Concomitant]
  2. METFORMIN [Concomitant]
  3. GLIBENCLAMIDE [Concomitant]
  4. CLOZAPINE [Suspect]
     Dosage: 500 MG, UNK

REACTIONS (6)
  - DIABETIC KETOACIDOSIS [None]
  - PYREXIA [None]
  - WHITE BLOOD CELL COUNT INCREASED [None]
  - UPPER RESPIRATORY TRACT INFECTION [None]
  - MYOCARDITIS [None]
  - NASAL CONGESTION [None]
